FAERS Safety Report 25240649 (Version 1)
Quarter: 2025Q2

REPORT INFORMATION
  Report Type: Report from Study
  Country: QA (occurrence: QA)
  Receive Date: 20250425
  Receipt Date: 20250425
  Transmission Date: 20250716
  Serious: Yes (Other)
  Sender: JOHNSON AND JOHNSON
  Company Number: QA-JNJFOC-20250427718

PATIENT

DRUGS (108)
  1. REMICADE [Suspect]
     Active Substance: INFLIXIMAB
     Indication: Rheumatoid arthritis
     Route: 041
  2. REMICADE [Suspect]
     Active Substance: INFLIXIMAB
     Indication: Ankylosing spondylitis
  3. REMICADE [Suspect]
     Active Substance: INFLIXIMAB
     Indication: Psoriatic arthropathy
  4. REMICADE [Suspect]
     Active Substance: INFLIXIMAB
     Indication: Peripheral spondyloarthritis
  5. REMICADE [Suspect]
     Active Substance: INFLIXIMAB
     Indication: Seronegative arthritis
  6. REMICADE [Suspect]
     Active Substance: INFLIXIMAB
     Indication: Still^s disease
  7. REMICADE [Suspect]
     Active Substance: INFLIXIMAB
     Indication: Systemic lupus erythematosus
  8. REMICADE [Suspect]
     Active Substance: INFLIXIMAB
     Indication: Sjogren^s syndrome
  9. REMICADE [Suspect]
     Active Substance: INFLIXIMAB
     Indication: Uveitis
  10. REMICADE [Suspect]
     Active Substance: INFLIXIMAB
     Indication: Polyarthritis
  11. REMICADE [Suspect]
     Active Substance: INFLIXIMAB
     Indication: Takayasu^s arteritis
  12. REMICADE [Suspect]
     Active Substance: INFLIXIMAB
     Indication: Juvenile idiopathic arthritis
  13. SIMPONI [Suspect]
     Active Substance: GOLIMUMAB
     Indication: Rheumatoid arthritis
     Route: 058
  14. SIMPONI [Suspect]
     Active Substance: GOLIMUMAB
     Indication: Ankylosing spondylitis
  15. SIMPONI [Suspect]
     Active Substance: GOLIMUMAB
     Indication: Psoriatic arthropathy
  16. SIMPONI [Suspect]
     Active Substance: GOLIMUMAB
     Indication: Peripheral spondyloarthritis
  17. SIMPONI [Suspect]
     Active Substance: GOLIMUMAB
     Indication: Seronegative arthritis
  18. SIMPONI [Suspect]
     Active Substance: GOLIMUMAB
     Indication: Still^s disease
  19. SIMPONI [Suspect]
     Active Substance: GOLIMUMAB
     Indication: Systemic lupus erythematosus
  20. SIMPONI [Suspect]
     Active Substance: GOLIMUMAB
     Indication: Sjogren^s syndrome
  21. SIMPONI [Suspect]
     Active Substance: GOLIMUMAB
     Indication: Uveitis
  22. SIMPONI [Suspect]
     Active Substance: GOLIMUMAB
     Indication: Polyarthritis
  23. SIMPONI [Suspect]
     Active Substance: GOLIMUMAB
     Indication: Takayasu^s arteritis
  24. SIMPONI [Suspect]
     Active Substance: GOLIMUMAB
     Indication: Juvenile idiopathic arthritis
  25. ADALIMUMAB [Suspect]
     Active Substance: ADALIMUMAB
     Indication: Rheumatoid arthritis
  26. ADALIMUMAB [Suspect]
     Active Substance: ADALIMUMAB
     Indication: Ankylosing spondylitis
  27. ADALIMUMAB [Suspect]
     Active Substance: ADALIMUMAB
     Indication: Psoriatic arthropathy
  28. ADALIMUMAB [Suspect]
     Active Substance: ADALIMUMAB
     Indication: Peripheral spondyloarthritis
  29. ADALIMUMAB [Suspect]
     Active Substance: ADALIMUMAB
     Indication: Seronegative arthritis
  30. ADALIMUMAB [Suspect]
     Active Substance: ADALIMUMAB
     Indication: Still^s disease
  31. ADALIMUMAB [Suspect]
     Active Substance: ADALIMUMAB
     Indication: Systemic lupus erythematosus
  32. ADALIMUMAB [Suspect]
     Active Substance: ADALIMUMAB
     Indication: Sjogren^s syndrome
  33. ADALIMUMAB [Suspect]
     Active Substance: ADALIMUMAB
     Indication: Uveitis
  34. ADALIMUMAB [Suspect]
     Active Substance: ADALIMUMAB
     Indication: Polyarthritis
  35. ADALIMUMAB [Suspect]
     Active Substance: ADALIMUMAB
     Indication: Takayasu^s arteritis
  36. ADALIMUMAB [Suspect]
     Active Substance: ADALIMUMAB
     Indication: Juvenile idiopathic arthritis
  37. CERTOLIZUMAB [Suspect]
     Active Substance: CERTOLIZUMAB
     Indication: Rheumatoid arthritis
  38. CERTOLIZUMAB [Suspect]
     Active Substance: CERTOLIZUMAB
     Indication: Ankylosing spondylitis
  39. CERTOLIZUMAB [Suspect]
     Active Substance: CERTOLIZUMAB
     Indication: Psoriatic arthropathy
  40. CERTOLIZUMAB [Suspect]
     Active Substance: CERTOLIZUMAB
     Indication: Peripheral spondyloarthritis
  41. CERTOLIZUMAB [Suspect]
     Active Substance: CERTOLIZUMAB
     Indication: Seronegative arthritis
  42. CERTOLIZUMAB [Suspect]
     Active Substance: CERTOLIZUMAB
     Indication: Still^s disease
  43. CERTOLIZUMAB [Suspect]
     Active Substance: CERTOLIZUMAB
     Indication: Systemic lupus erythematosus
  44. CERTOLIZUMAB [Suspect]
     Active Substance: CERTOLIZUMAB
     Indication: Sjogren^s syndrome
  45. CERTOLIZUMAB [Suspect]
     Active Substance: CERTOLIZUMAB
     Indication: Uveitis
  46. CERTOLIZUMAB [Suspect]
     Active Substance: CERTOLIZUMAB
     Indication: Polyarthritis
  47. CERTOLIZUMAB [Suspect]
     Active Substance: CERTOLIZUMAB
     Indication: Takayasu^s arteritis
  48. CERTOLIZUMAB [Suspect]
     Active Substance: CERTOLIZUMAB
     Indication: Juvenile idiopathic arthritis
  49. ETANERCEPT [Suspect]
     Active Substance: ETANERCEPT
     Indication: Rheumatoid arthritis
  50. ETANERCEPT [Suspect]
     Active Substance: ETANERCEPT
     Indication: Ankylosing spondylitis
  51. ETANERCEPT [Suspect]
     Active Substance: ETANERCEPT
     Indication: Psoriatic arthropathy
  52. ETANERCEPT [Suspect]
     Active Substance: ETANERCEPT
     Indication: Peripheral spondyloarthritis
  53. ETANERCEPT [Suspect]
     Active Substance: ETANERCEPT
     Indication: Seronegative arthritis
  54. ETANERCEPT [Suspect]
     Active Substance: ETANERCEPT
     Indication: Still^s disease
  55. ETANERCEPT [Suspect]
     Active Substance: ETANERCEPT
     Indication: Systemic lupus erythematosus
  56. ETANERCEPT [Suspect]
     Active Substance: ETANERCEPT
     Indication: Sjogren^s syndrome
  57. ETANERCEPT [Suspect]
     Active Substance: ETANERCEPT
     Indication: Uveitis
  58. ETANERCEPT [Suspect]
     Active Substance: ETANERCEPT
     Indication: Polyarthritis
  59. ETANERCEPT [Suspect]
     Active Substance: ETANERCEPT
     Indication: Takayasu^s arteritis
  60. ETANERCEPT [Suspect]
     Active Substance: ETANERCEPT
     Indication: Juvenile idiopathic arthritis
  61. NATALIZUMAB [Suspect]
     Active Substance: NATALIZUMAB
     Indication: Rheumatoid arthritis
  62. NATALIZUMAB [Suspect]
     Active Substance: NATALIZUMAB
     Indication: Ankylosing spondylitis
  63. NATALIZUMAB [Suspect]
     Active Substance: NATALIZUMAB
     Indication: Psoriatic arthropathy
  64. NATALIZUMAB [Suspect]
     Active Substance: NATALIZUMAB
     Indication: Peripheral spondyloarthritis
  65. NATALIZUMAB [Suspect]
     Active Substance: NATALIZUMAB
     Indication: Seronegative arthritis
  66. NATALIZUMAB [Suspect]
     Active Substance: NATALIZUMAB
     Indication: Still^s disease
  67. NATALIZUMAB [Suspect]
     Active Substance: NATALIZUMAB
     Indication: Systemic lupus erythematosus
  68. NATALIZUMAB [Suspect]
     Active Substance: NATALIZUMAB
     Indication: Sjogren^s syndrome
  69. NATALIZUMAB [Suspect]
     Active Substance: NATALIZUMAB
     Indication: Uveitis
  70. NATALIZUMAB [Suspect]
     Active Substance: NATALIZUMAB
     Indication: Polyarthritis
  71. NATALIZUMAB [Suspect]
     Active Substance: NATALIZUMAB
     Indication: Takayasu^s arteritis
  72. NATALIZUMAB [Suspect]
     Active Substance: NATALIZUMAB
     Indication: Juvenile idiopathic arthritis
  73. OCRELIZUMAB [Suspect]
     Active Substance: OCRELIZUMAB
     Indication: Rheumatoid arthritis
  74. OCRELIZUMAB [Suspect]
     Active Substance: OCRELIZUMAB
     Indication: Ankylosing spondylitis
  75. OCRELIZUMAB [Suspect]
     Active Substance: OCRELIZUMAB
     Indication: Psoriatic arthropathy
  76. OCRELIZUMAB [Suspect]
     Active Substance: OCRELIZUMAB
     Indication: Peripheral spondyloarthritis
  77. OCRELIZUMAB [Suspect]
     Active Substance: OCRELIZUMAB
     Indication: Seronegative arthritis
  78. OCRELIZUMAB [Suspect]
     Active Substance: OCRELIZUMAB
     Indication: Still^s disease
  79. OCRELIZUMAB [Suspect]
     Active Substance: OCRELIZUMAB
     Indication: Systemic lupus erythematosus
  80. OCRELIZUMAB [Suspect]
     Active Substance: OCRELIZUMAB
     Indication: Sjogren^s syndrome
  81. OCRELIZUMAB [Suspect]
     Active Substance: OCRELIZUMAB
     Indication: Uveitis
  82. OCRELIZUMAB [Suspect]
     Active Substance: OCRELIZUMAB
     Indication: Polyarthritis
  83. OCRELIZUMAB [Suspect]
     Active Substance: OCRELIZUMAB
     Indication: Takayasu^s arteritis
  84. OCRELIZUMAB [Suspect]
     Active Substance: OCRELIZUMAB
     Indication: Juvenile idiopathic arthritis
  85. SECUKINUMAB [Suspect]
     Active Substance: SECUKINUMAB
     Indication: Rheumatoid arthritis
  86. SECUKINUMAB [Suspect]
     Active Substance: SECUKINUMAB
     Indication: Ankylosing spondylitis
  87. SECUKINUMAB [Suspect]
     Active Substance: SECUKINUMAB
     Indication: Psoriatic arthropathy
  88. SECUKINUMAB [Suspect]
     Active Substance: SECUKINUMAB
     Indication: Peripheral spondyloarthritis
  89. SECUKINUMAB [Suspect]
     Active Substance: SECUKINUMAB
     Indication: Seronegative arthritis
  90. SECUKINUMAB [Suspect]
     Active Substance: SECUKINUMAB
     Indication: Still^s disease
  91. SECUKINUMAB [Suspect]
     Active Substance: SECUKINUMAB
     Indication: Systemic lupus erythematosus
  92. SECUKINUMAB [Suspect]
     Active Substance: SECUKINUMAB
     Indication: Sjogren^s syndrome
  93. SECUKINUMAB [Suspect]
     Active Substance: SECUKINUMAB
     Indication: Uveitis
  94. SECUKINUMAB [Suspect]
     Active Substance: SECUKINUMAB
     Indication: Polyarthritis
  95. SECUKINUMAB [Suspect]
     Active Substance: SECUKINUMAB
     Indication: Takayasu^s arteritis
  96. SECUKINUMAB [Suspect]
     Active Substance: SECUKINUMAB
     Indication: Juvenile idiopathic arthritis
  97. TOCILIZUMAB [Suspect]
     Active Substance: TOCILIZUMAB
     Indication: Rheumatoid arthritis
  98. TOCILIZUMAB [Suspect]
     Active Substance: TOCILIZUMAB
     Indication: Ankylosing spondylitis
  99. TOCILIZUMAB [Suspect]
     Active Substance: TOCILIZUMAB
     Indication: Psoriatic arthropathy
  100. TOCILIZUMAB [Suspect]
     Active Substance: TOCILIZUMAB
     Indication: Peripheral spondyloarthritis
  101. TOCILIZUMAB [Suspect]
     Active Substance: TOCILIZUMAB
     Indication: Seronegative arthritis
  102. TOCILIZUMAB [Suspect]
     Active Substance: TOCILIZUMAB
     Indication: Still^s disease
  103. TOCILIZUMAB [Suspect]
     Active Substance: TOCILIZUMAB
     Indication: Systemic lupus erythematosus
  104. TOCILIZUMAB [Suspect]
     Active Substance: TOCILIZUMAB
     Indication: Sjogren^s syndrome
  105. TOCILIZUMAB [Suspect]
     Active Substance: TOCILIZUMAB
     Indication: Uveitis
  106. TOCILIZUMAB [Suspect]
     Active Substance: TOCILIZUMAB
     Indication: Polyarthritis
  107. TOCILIZUMAB [Suspect]
     Active Substance: TOCILIZUMAB
     Indication: Takayasu^s arteritis
  108. TOCILIZUMAB [Suspect]
     Active Substance: TOCILIZUMAB
     Indication: Juvenile idiopathic arthritis

REACTIONS (8)
  - Bacteraemia [Unknown]
  - Central nervous system infection [Unknown]
  - COVID-19 [Unknown]
  - Respiratory tract infection [Unknown]
  - Gastrointestinal infection [Unknown]
  - Urinary tract infection [Unknown]
  - Arthritis infective [Unknown]
  - Skin infection [Unknown]
